FAERS Safety Report 21450457 (Version 1)
Quarter: 2022Q4

REPORT INFORMATION
  Report Type: Report from Study
  Country: US (occurrence: US)
  Receive Date: 20221013
  Receipt Date: 20221013
  Transmission Date: 20230113
  Serious: No
  Sender: FDA-Public Use
  Company Number: US-ABBVIE-22K-163-4368340-00

PATIENT
  Sex: Female

DRUGS (4)
  1. RINVOQ [Suspect]
     Active Substance: UPADACITINIB
     Indication: Rheumatoid arthritis
     Route: 048
  2. RINVOQ [Suspect]
     Active Substance: UPADACITINIB
     Indication: Rheumatoid arthritis
     Route: 048
  3. MODERNA COVID-19 VACCINE [Suspect]
     Active Substance: ELASOMERAN
     Indication: COVID-19 immunisation
     Dosage: TIME INTERVAL: 1 TOTAL
     Route: 030
     Dates: start: 202106, end: 202106
  4. MODERNA COVID-19 VACCINE [Suspect]
     Active Substance: ELASOMERAN
     Indication: COVID-19 immunisation
     Dosage: TIME INTERVAL: 1 TOTAL
     Route: 030
     Dates: start: 202107, end: 202107

REACTIONS (11)
  - Neck mass [Not Recovered/Not Resolved]
  - Asthenia [Recovered/Resolved]
  - Insomnia [Unknown]
  - Skin odour abnormal [Not Recovered/Not Resolved]
  - Lethargy [Not Recovered/Not Resolved]
  - Vitamin B complex deficiency [Not Recovered/Not Resolved]
  - Cyst [Recovering/Resolving]
  - Onychomycosis [Not Recovered/Not Resolved]
  - Illness [Recovered/Resolved]
  - Oral pain [Not Recovered/Not Resolved]
  - Vertigo [Unknown]
